FAERS Safety Report 8351228-X (Version None)
Quarter: 2012Q2

REPORT INFORMATION
  Report Type: 
  Country: None (occurrence: None)
  Receive Date: 20120510
  Receipt Date: 20120504
  Transmission Date: 20120825
  Serious: Yes (Hospitalization, Other)
  Sender: FDA-Public Use
  Company Number: VE-PFIZER INC-2012103800

PATIENT
  Age: 71 Year
  Sex: Male

DRUGS (8)
  1. LIPITOR [Suspect]
     Indication: CARDIAC DISORDER
     Dosage: 80 MG, 1X/DAY
     Route: 048
  2. CARDIPRIN [Concomitant]
     Indication: CARDIAC DISORDER
     Dosage: 80 MG, 1X/DAY
     Route: 048
  3. CORASPIN [Concomitant]
     Indication: CARDIAC DISORDER
     Dosage: 81 MG, 1X/DAY
     Route: 048
  4. CORAZEM [Concomitant]
     Indication: CARDIAC DISORDER
     Dosage: 120 MG, 1X/DAY
     Route: 048
  5. AMIODARONE HCL [Concomitant]
     Indication: CARDIAC DISORDER
     Dosage: 200 MG, 1X/DAY
     Route: 048
     Dates: end: 20120426
  6. VESSEL DUE [Concomitant]
     Indication: BLOOD UREA ABNORMAL
     Dosage: 250 LBS, 1X/DAY
     Route: 030
  7. PLAVIX [Concomitant]
     Indication: CARDIAC DISORDER
     Dosage: 75 MG, 1X/DAY
     Route: 048
  8. COLCHICINE [Concomitant]
     Indication: GOUT
     Dosage: 5 MG, 1X/DAY
     Route: 048

REACTIONS (3)
  - ARRHYTHMIA [None]
  - VASCULAR CALCIFICATION [None]
  - STENT PLACEMENT [None]
